FAERS Safety Report 19184591 (Version 1)
Quarter: 2021Q2

REPORT INFORMATION
  Report Type: Report from Study
  Country: US (occurrence: US)
  Receive Date: 20210427
  Receipt Date: 20210427
  Transmission Date: 20210717
  Serious: Yes (Other)
  Sender: FDA-Public Use
  Company Number: US-MYLANLABS-2021M1024732

PATIENT

DRUGS (2)
  1. AZACITIDINE. [Suspect]
     Active Substance: AZACITIDINE
     Indication: ACUTE MYELOID LEUKAEMIA
     Dosage: 36 MILLIGRAM/SQ. METER, CYCLE
     Route: 042
  2. AZACITIDINE. [Suspect]
     Active Substance: AZACITIDINE
     Dosage: DOSE WAS REDUCED. FURTHER AZACITIDINE DOSE WAS DELAYED DUE TO FEVER,..
     Route: 065

REACTIONS (5)
  - Abdominal discomfort [Unknown]
  - Pneumatosis intestinalis [Unknown]
  - Cytopenia [Recovered/Resolved]
  - Pyrexia [Unknown]
  - Enterococcal infection [Unknown]
